FAERS Safety Report 20807483 (Version 1)
Quarter: 2022Q2

REPORT INFORMATION
  Report Type: Spontaneous
  Country: GR (occurrence: GR)
  Receive Date: 20220510
  Receipt Date: 20220510
  Transmission Date: 20220721
  Serious: Yes (Death, Hospitalization, Other)
  Sender: FDA-Public Use
  Company Number: GR-PFIZER INC-2020132857

PATIENT
  Age: 79 Year
  Sex: Female

DRUGS (5)
  1. METHOTREXATE [Suspect]
     Active Substance: METHOTREXATE
     Indication: Rheumatoid arthritis
     Dosage: UNK
  2. TOFACITINIB CITRATE [Suspect]
     Active Substance: TOFACITINIB CITRATE
     Indication: Rheumatoid arthritis
     Dosage: UNK
  3. COLISTIN [Concomitant]
     Active Substance: COLISTIN
     Dosage: UNK
  4. MEROPENEM [Concomitant]
     Active Substance: MEROPENEM
     Dosage: UNK
  5. GANCICLOVIR [Concomitant]
     Active Substance: GANCICLOVIR
     Dosage: UNK

REACTIONS (12)
  - Cytomegalovirus infection [Fatal]
  - Haematochezia [Unknown]
  - Necrotising colitis [Unknown]
  - Cytomegalovirus colitis [Unknown]
  - Shock [Unknown]
  - Stress cardiomyopathy [Unknown]
  - Pneumonia acinetobacter [Unknown]
  - Pneumonia cytomegaloviral [Unknown]
  - Stenotrophomonas infection [Unknown]
  - Cytomegalovirus viraemia [Unknown]
  - Rash maculo-papular [Unknown]
  - Pyrexia [Unknown]
